FAERS Safety Report 4660439-6 (Version None)
Quarter: 2005Q2

REPORT INFORMATION
  Report Type: 
  Country: None (occurrence: None)
  Receive Date: 20050512
  Receipt Date: 20050510
  Transmission Date: 20051028
  Serious: Yes (Other)
  Sender: FDA-Public Use
  Company Number: CA-GLAXOSMITHKLINE-A0558170A

PATIENT
  Age: 20 Year
  Sex: Female

DRUGS (5)
  1. TIMENTIN [Suspect]
     Indication: ILL-DEFINED DISORDER
     Dosage: 3.1G SIX TIMES PER DAY
     Route: 042
  2. CALCIUM CARBONATE [Concomitant]
  3. HEPARIN [Concomitant]
     Dosage: 2500UNIT TWICE PER DAY
     Route: 058
  4. LOSEC [Concomitant]
  5. VITAMIN D [Concomitant]

REACTIONS (1)
  - PROTHROMBIN LEVEL DECREASED [None]
